FAERS Safety Report 21150326 (Version 1)
Quarter: 2022Q3

REPORT INFORMATION
  Report Type: Spontaneous
  Country: US (occurrence: US)
  Receive Date: 20220729
  Receipt Date: 20220729
  Transmission Date: 20221027
  Serious: Yes (Death)
  Sender: FDA-Public Use
  Company Number: US-Fresenius Medical Care Renal Therapies Group-FMC-2207-001098

PATIENT
  Age: 72 Year
  Sex: Female
  Weight: 62.5 kg

DRUGS (2)
  1. DELFLEX WITH DEXTROSE 1.5% LOW MAGNESIUM LOW CALCIUM [Suspect]
     Active Substance: CALCIUM CHLORIDE\DEXTROSE\MAGNESIUM CHLORIDE\SODIUM CHLORIDE\SODIUM LACTATE
     Indication: End stage renal disease
     Dosage: AT 2000 ML FOR 4 CYCLES WITH A LAST FILL OF 1000 ML AND NO DAYTIME EXCHANGE, SINCE APRIL 2022
     Route: 033
  2. DELFLEX WITH DEXTROSE 2.5% LOW MAGNESIUM LOW CALCIUM [Suspect]
     Active Substance: CALCIUM CHLORIDE\DEXTROSE\MAGNESIUM CHLORIDE\SODIUM CHLORIDE\SODIUM LACTATE
     Indication: End stage renal disease
     Dosage: AT 2000 ML FOR 4 CYCLES WITH A LAST FILL OF 1000 ML AND NO DAYTIME EXCHANGE, SINCE APRIL 2022
     Route: 033

REACTIONS (1)
  - Cardiac arrest [Fatal]
